FAERS Safety Report 24875595 (Version 1)
Quarter: 2025Q1

REPORT INFORMATION
  Report Type: Other
  Country: PL (occurrence: PL)
  Receive Date: 20250122
  Receipt Date: 20250122
  Transmission Date: 20250409
  Serious: Yes (Other)
  Sender: B BRAUN
  Company Number: PL-B.Braun Medical Inc.-2169585

PATIENT
  Age: 31 Year
  Sex: Female

DRUGS (16)
  1. DEXTROSE [Suspect]
     Active Substance: DEXTROSE MONOHYDRATE
  2. DEXTROSE\SODIUM CHLORIDE [Suspect]
     Active Substance: DEXTROSE\SODIUM CHLORIDE
  3. ACETAMINOPHEN [Concomitant]
     Active Substance: ACETAMINOPHEN
  4. POLYSTYRENE SULFONIC ACID [Suspect]
     Active Substance: POLYSTYRENE SULFONIC ACID
  5. SODIUM CHLORIDE [Suspect]
     Active Substance: SODIUM CHLORIDE
  6. SODIUM BICARBONATE [Suspect]
     Active Substance: SODIUM BICARBONATE
  7. CALCIUM CHLORIDE [Suspect]
     Active Substance: CALCIUM CHLORIDE
  8. DEXTROSE [Suspect]
     Active Substance: DEXTROSE MONOHYDRATE
  9. EPINEPHRINE [Suspect]
     Active Substance: EPINEPHRINE
  10. AMOXICILLIN\CLAVULANIC ACID [Suspect]
     Active Substance: AMOXICILLIN\CLAVULANIC ACID
  11. LEVOFLOXACIN [Suspect]
     Active Substance: LEVOFLOXACIN
  12. PANTOPRAZOLE [Suspect]
     Active Substance: PANTOPRAZOLE
  13. UNSPECIFIED INGREDIENT [Suspect]
     Active Substance: UNSPECIFIED INGREDIENT
  14. MIDAZOLAM [Suspect]
     Active Substance: MIDAZOLAM
  15. NOREPINEPHRINE [Suspect]
     Active Substance: NOREPINEPHRINE
  16. INSULIN NOS [Suspect]
     Active Substance: INSULIN NOS

REACTIONS (1)
  - Drug ineffective [Unknown]
